FAERS Safety Report 7879357-5 (Version None)
Quarter: 2011Q4

REPORT INFORMATION
  Report Type: 
  Country: None (occurrence: None)
  Receive Date: 20111101
  Receipt Date: 20111019
  Transmission Date: 20120403
  Serious: Yes (Hospitalization)
  Sender: FDA-Public Use
  Company Number: US-BAYER-2011-018976

PATIENT
  Age: 43 Year
  Sex: Female
  Weight: 72.562 kg

DRUGS (5)
  1. ZITHROMAX [Concomitant]
     Indication: RESPIRATORY TRACT CONGESTION
  2. HUMIBID [Concomitant]
     Indication: COUGH
     Dosage: UNK
     Dates: start: 20050125
  3. YASMIN [Suspect]
     Indication: CONTRACEPTION
     Dosage: UNK
     Route: 048
     Dates: start: 20040501, end: 20050203
  4. HUMIBID [Concomitant]
     Indication: RESPIRATORY TRACT CONGESTION
  5. ZITHROMAX [Concomitant]
     Indication: COUGH
     Dosage: UNK
     Dates: start: 20050125

REACTIONS (2)
  - DEEP VEIN THROMBOSIS [None]
  - PAIN [None]
